FAERS Safety Report 6956871-8 (Version None)
Quarter: 2010Q3

REPORT INFORMATION
  Report Type: 
  Country: None (occurrence: None)
  Receive Date: 20100826
  Receipt Date: 20100820
  Transmission Date: 20110219
  Serious: Yes (Hospitalization)
  Sender: FDA-Public Use
  Company Number: KV200900700

PATIENT
  Age: 74 Year
  Sex: Female
  Weight: 72.6 kg

DRUGS (5)
  1. MORPHINE SULFATE [Suspect]
     Indication: PAIN
     Dosage: ORAL
     Route: 048
     Dates: start: 20080912
  2. DYAZIDE [Concomitant]
  3. DIAZEPAM [Concomitant]
  4. VICODIN [Concomitant]
  5. KEFLEX [Concomitant]

REACTIONS (13)
  - ABSCESS [None]
  - CELLULITIS [None]
  - DISORIENTATION [None]
  - DIZZINESS [None]
  - ERYTHEMA [None]
  - ESCHAR [None]
  - FALL [None]
  - MALAISE [None]
  - OEDEMA [None]
  - PSEUDOMONAS INFECTION [None]
  - PURULENCE [None]
  - SKIN LACERATION [None]
  - WOUND COMPLICATION [None]
